FAERS Safety Report 7331608-1 (Version None)
Quarter: 2011Q1

REPORT INFORMATION
  Report Type: 
  Country: None (occurrence: None)
  Receive Date: 20110304
  Receipt Date: 20101210
  Transmission Date: 20110831
  Serious: Yes (Hospitalization, Other)
  Sender: FDA-Public Use
  Company Number: JP-BAYER-201010087BYL

PATIENT
  Sex: Male
  Weight: 60 kg

DRUGS (12)
  1. AMARYL [Concomitant]
     Dosage: 1 MG, QD
     Route: 048
  2. NEXAVAR [Suspect]
     Indication: HEPATIC NEOPLASM MALIGNANT
     Dosage: 400 MG, BID
     Route: 048
     Dates: start: 20091201, end: 20100104
  3. RENIVEZE [Concomitant]
     Dosage: 5 MG, QD
     Route: 048
     Dates: start: 20101203
  4. AMLODIPINE [Concomitant]
     Dosage: 10 MG, QD
     Route: 048
     Dates: start: 20101203
  5. SELBEX [Concomitant]
     Indication: GASTRITIS PROPHYLAXIS
     Dosage: 4.5 G, QD
     Route: 048
  6. LIVACT [Concomitant]
     Dosage: 12.45 G, QD
     Route: 048
  7. DIGOXIN [Concomitant]
     Dosage: 0.25 MG, QD
     Route: 048
  8. METHYCOBAL [Concomitant]
     Dosage: 1500 ?G, QD
     Route: 048
  9. AMLODIPINE [Concomitant]
     Dosage: 5 MG, QD
     Route: 048
     Dates: end: 20091202
  10. URSO 250 [Concomitant]
     Dosage: 150 MG, QD
     Route: 048
  11. HALCION [Concomitant]
     Dosage: 0.25 MG, QD
     Route: 048
  12. RENIVEZE [Concomitant]
     Indication: HYPERTENSION
     Dosage: 2.5 MG, QD
     Route: 048
     Dates: end: 20101202

REACTIONS (2)
  - HYPERTENSION [None]
  - CEREBRAL INFARCTION [None]
